FAERS Safety Report 13355058 (Version 2)
Quarter: 2018Q1

REPORT INFORMATION
  Report Type: Spontaneous
  Country: IT (occurrence: IT)
  Receive Date: 20170321
  Receipt Date: 20180213
  Transmission Date: 20180508
  Serious: Yes (Life-Threatening)
  Sender: FDA-Public Use
  Company Number: IT-TELIGENT, INC-IGIL20170102

PATIENT
  Age: 77 Year
  Sex: Female

DRUGS (1)
  1. CEFTAZIDIME. [Suspect]
     Active Substance: CEFTAZIDIME
     Indication: CHRONIC OBSTRUCTIVE PULMONARY DISEASE
     Dosage: 1 G IN TOTAL
     Route: 041
     Dates: start: 20170214, end: 20170214

REACTIONS (3)
  - Hypotension [Recovered/Resolved]
  - Pruritus [Recovered/Resolved]
  - Dyspnoea [Recovered/Resolved]

NARRATIVE: CASE EVENT DATE: 20170214
